FAERS Safety Report 12662074 (Version 1)
Quarter: 2016Q3

REPORT INFORMATION
  Report Type: Report from Study
  Country: US (occurrence: US)
  Receive Date: 20160817
  Receipt Date: 20160817
  Transmission Date: 20161109
  Serious: Yes (Other)
  Sender: FDA-Public Use
  Company Number: US-AEGERION PHARMACEUTICALS-AEGR002592

PATIENT
  Sex: Female

DRUGS (2)
  1. JUXTAPID [Suspect]
     Active Substance: LOMITAPIDE MESYLATE
     Indication: TYPE IIA HYPERLIPIDAEMIA
     Dosage: 5 MG, QD
     Route: 048
     Dates: start: 20130528
  2. JUXTAPID [Suspect]
     Active Substance: LOMITAPIDE MESYLATE
     Dosage: 5 MG, QD
     Route: 048
     Dates: start: 201503

REACTIONS (8)
  - Asthenia [Unknown]
  - Diarrhoea [Unknown]
  - Liver function test increased [Unknown]
  - Abdominal pain upper [Unknown]
  - Treatment noncompliance [Unknown]
  - Back pain [Unknown]
  - Therapy cessation [Recovered/Resolved]
  - Flatulence [Unknown]
